FAERS Safety Report 24192986 (Version 1)
Quarter: 2024Q3

REPORT INFORMATION
  Report Type: Spontaneous
  Country: US (occurrence: US)
  Receive Date: 20240809
  Receipt Date: 20240809
  Transmission Date: 20241017
  Serious: Yes (Hospitalization, Other)
  Sender: ZYDUS PHARM
  Company Number: US-CADILA HEALTHCARE LIMITED-US-ZYDUS-110494

PATIENT

DRUGS (1)
  1. NELARABINE [Suspect]
     Active Substance: NELARABINE
     Indication: Precursor T-lymphoblastic lymphoma/leukaemia
     Dosage: UNK
     Route: 065

REACTIONS (2)
  - Respiratory failure [Recovering/Resolving]
  - Neurotoxicity [Recovering/Resolving]
